FAERS Safety Report 5821197-2 (Version None)
Quarter: 2008Q3

REPORT INFORMATION
  Report Type: 
  Country: None (occurrence: None)
  Receive Date: 20080724
  Receipt Date: 20080709
  Transmission Date: 20090109
  Serious: Yes (Hospitalization)
  Sender: FDA-Public Use
  Company Number: JP-BAYER-200811519BYL

PATIENT
  Age: 62 Year
  Sex: Male

DRUGS (2)
  1. ASPIRIN [Suspect]
     Indication: ANTIPLATELET THERAPY
     Route: 048
  2. WARFARIN SODIUM [Suspect]
     Indication: ANTICOAGULANT THERAPY
     Route: 048

REACTIONS (4)
  - ANAEMIA [None]
  - BRUNNER'S GLAND HYPERPLASIA [None]
  - DIZZINESS [None]
  - SMALL INTESTINAL HAEMORRHAGE [None]
